FAERS Safety Report 5455545-2 (Version None)
Quarter: 2007Q3

REPORT INFORMATION
  Report Type: 
  Country: None (occurrence: None)
  Receive Date: 20070918
  Receipt Date: 20070330
  Transmission Date: 20080115
  Serious: Yes (Other)
  Sender: FDA-Public Use
  Company Number: US-ASTRAZENECA-2006UW21947

PATIENT
  Sex: Female
  Weight: 82.7 kg

DRUGS (2)
  1. SEROQUEL [Suspect]
     Indication: SCHIZOPHRENIA
     Route: 048
     Dates: start: 20040123
  2. SEROQUEL [Suspect]
     Indication: DEPRESSION
     Route: 048
     Dates: start: 20040123

REACTIONS (4)
  - BLOOD CHOLESTEROL INCREASED [None]
  - DIABETES MELLITUS [None]
  - OBESITY [None]
  - PANCREATITIS [None]
